FAERS Safety Report 17705883 (Version 1)
Quarter: 2020Q2

REPORT INFORMATION
  Report Type: Spontaneous
  Country: DE (occurrence: DE)
  Receive Date: 20200424
  Receipt Date: 20200424
  Transmission Date: 20200714
  Serious: Yes (Other)
  Sender: FDA-Public Use
  Company Number: DE-SA-2020SA100597

PATIENT
  Age: 26 Year
  Sex: Female

DRUGS (1)
  1. ALEMTUZUMAB [Suspect]
     Active Substance: ALEMTUZUMAB
     Indication: RELAPSING-REMITTING MULTIPLE SCLEROSIS
     Dosage: UNK UNK, QCY

REACTIONS (5)
  - Synovial disorder [Unknown]
  - Synovitis [Unknown]
  - Arthralgia [Unknown]
  - Polyarthritis [Unknown]
  - Joint swelling [Unknown]
